FAERS Safety Report 13656964 (Version 2)
Quarter: 2017Q3

REPORT INFORMATION
  Report Type: Report from Study
  Country: US (occurrence: US)
  Receive Date: 20170615
  Receipt Date: 20170703
  Transmission Date: 20171127
  Serious: Yes (Hospitalization, Other)
  Sender: FDA-Public Use
  Company Number: US-GILEAD-2017-0274869

PATIENT
  Age: 75 Year
  Sex: Male

DRUGS (11)
  1. AMBRISENTAN [Suspect]
     Active Substance: AMBRISENTAN
     Indication: INTERSTITIAL LUNG DISEASE
  2. FISH OIL [Concomitant]
     Active Substance: FISH OIL
  3. VITAMIN D [Concomitant]
     Active Substance: CHOLECALCIFEROL
  4. SILDENAFIL CITRATE. [Concomitant]
     Active Substance: SILDENAFIL CITRATE
     Dosage: 40 MG, UNK
     Route: 048
  5. ATORVASTATIN [Concomitant]
     Active Substance: ATORVASTATIN
  6. SILDENAFIL CITRATE. [Concomitant]
     Active Substance: SILDENAFIL CITRATE
     Dosage: 20 MG, UNK
     Route: 048
     Dates: start: 20160624
  7. AMBRISENTAN [Suspect]
     Active Substance: AMBRISENTAN
     Indication: PULMONARY ARTERIAL HYPERTENSION
     Dosage: 10 MG, QD
     Route: 048
     Dates: start: 20170118
  8. LISINOPRIL. [Concomitant]
     Active Substance: LISINOPRIL
  9. TERBINAFINE. [Concomitant]
     Active Substance: TERBINAFINE
  10. MULTIVITAMINS                      /00116001/ [Concomitant]
     Active Substance: VITAMINS
  11. LUDENT FLUORIDE [Concomitant]

REACTIONS (5)
  - Brain neoplasm malignant [Not Recovered/Not Resolved]
  - Dizziness [Unknown]
  - General physical health deterioration [Unknown]
  - Condition aggravated [Unknown]
  - Asthenia [Unknown]

NARRATIVE: CASE EVENT DATE: 20170516
